FAERS Safety Report 6682336-7 (Version None)
Quarter: 2010Q2

REPORT INFORMATION
  Report Type: 
  Country: None (occurrence: None)
  Receive Date: 20100415
  Receipt Date: 20100406
  Transmission Date: 20101027
  Serious: Yes (Other)
  Sender: FDA-Public Use
  Company Number: JP-PFIZER INC-2010044259

PATIENT
  Sex: Male

DRUGS (2)
  1. NORVASC [Suspect]
     Dosage: 5 MG DAILY
     Route: 048
  2. ENALAPRIL [Concomitant]
     Route: 048

REACTIONS (1)
  - PHOTOSENSITIVITY REACTION [None]
